FAERS Safety Report 5454960-0 (Version None)
Quarter: 2007Q3

REPORT INFORMATION
  Report Type: 
  Country: None (occurrence: None)
  Receive Date: 20070917
  Receipt Date: 20070905
  Transmission Date: 20080115
  Serious: Yes (Hospitalization, Other)
  Sender: FDA-Public Use
  Company Number: DE-PFIZER INC-2007061695

PATIENT
  Sex: Female
  Weight: 113 kg

DRUGS (11)
  1. LYRICA [Suspect]
     Indication: MUSCULOSKELETAL PAIN
     Route: 048
     Dates: start: 20070601, end: 20070719
  2. BISOPROLOL [Concomitant]
     Route: 048
  3. METFORMIN HCL [Concomitant]
     Route: 048
  4. VALSARTAN [Concomitant]
  5. AMLODIPINE [Concomitant]
  6. AMLODIPINE BESYLATE/VALSARTAN [Concomitant]
     Route: 048
  7. NEXIUM [Concomitant]
     Route: 048
  8. SIMVASTATIN [Concomitant]
     Route: 048
  9. HUMALOG [Concomitant]
     Route: 058
  10. ALL OTHER THERAPEUTIC PRODUCTS [Concomitant]
     Route: 058
  11. DICLOFENAC RESINATE [Concomitant]
     Route: 048

REACTIONS (5)
  - CARBON DIOXIDE INCREASED [None]
  - HYPERCAPNIA [None]
  - RESPIRATORY DISORDER [None]
  - RESPIRATORY FAILURE [None]
  - SOMNOLENCE [None]
